FAERS Safety Report 8005886-X (Version None)
Quarter: 2011Q4

REPORT INFORMATION
  Report Type: 
  Country: None (occurrence: None)
  Receive Date: 20111223
  Receipt Date: 20111208
  Transmission Date: 20120403
  Serious: Yes (Other)
  Sender: FDA-Public Use
  Company Number: US-ROCHE-1020302

PATIENT
  Sex: Male

DRUGS (5)
  1. ZELBORAF [Suspect]
     Indication: MALIGNANT MELANOMA
     Route: 048
     Dates: start: 20110901, end: 20111103
  2. LISINOPRIL [Concomitant]
     Route: 048
  3. DULCOLAX [Concomitant]
     Dosage: AS REQUIRED
     Route: 048
  4. VICODIN [Concomitant]
     Dosage: AS REQUIRED
     Route: 048
  5. MEGACE [Concomitant]
     Dosage: AS REQUIRED
     Route: 048

REACTIONS (3)
  - DECREASED APPETITE [None]
  - DEEP VEIN THROMBOSIS [None]
  - VISUAL IMPAIRMENT [None]
